FAERS Safety Report 5954001-2 (Version None)
Quarter: 2008Q4

REPORT INFORMATION
  Report Type: 
  Country: None (occurrence: None)
  Receive Date: 20081114
  Receipt Date: 20081107
  Transmission Date: 20090506
  Serious: Yes (Hospitalization)
  Sender: FDA-Public Use
  Company Number: FR-GENENTECH-270112

PATIENT
  Age: 60 Year
  Sex: Female

DRUGS (3)
  1. MABTHERA [Suspect]
     Indication: PEMPHIGUS
     Dosage: 375 MG/M2, UNK
     Route: 065
  2. MYCOPHENOLATE MOFETIL [Suspect]
     Indication: PEMPHIGUS
  3. CORTICOSTEROIDS (UNK INGREDIENTS) [Concomitant]
     Indication: DRUG USE FOR UNKNOWN INDICATION
     Dosage: UNK

REACTIONS (1)
  - PNEUMONITIS [None]
